FAERS Safety Report 7828029-1 (Version None)
Quarter: 2011Q4

REPORT INFORMATION
  Report Type: 
  Country: None (occurrence: None)
  Receive Date: 20111020
  Receipt Date: 20111012
  Transmission Date: 20120403
  Serious: Yes (Other)
  Sender: FDA-Public Use
  Company Number: US-GLAXOSMITHKLINE-A0948832A

PATIENT
  Age: 64 Year
  Sex: Female

DRUGS (1)
  1. LAMICTAL [Suspect]
     Indication: CONVULSION
     Dosage: 400MG TWICE PER DAY
     Route: 048
     Dates: start: 20080101

REACTIONS (5)
  - DIZZINESS [None]
  - EYE MOVEMENT DISORDER [None]
  - FEELING ABNORMAL [None]
  - CONVULSION [None]
  - ILL-DEFINED DISORDER [None]
